FAERS Safety Report 5682679-X (Version None)
Quarter: 2008Q1

REPORT INFORMATION
  Report Type: 
  Country: None (occurrence: None)
  Receive Date: 20080327
  Receipt Date: 20080225
  Transmission Date: 20080703
  Serious: No
  Sender: FDA-Public Use
  Company Number: US-BRISTOL-MYERS SQUIBB COMPANY-14089924

PATIENT
  Age: 71 Year
  Sex: Female
  Weight: 88 kg

DRUGS (6)
  1. ORENCIA [Suspect]
     Indication: RHEUMATOID ARTHRITIS
  2. VITAMIN B [Concomitant]
  3. VITAMIN A [Concomitant]
  4. FOLIC ACID [Concomitant]
  5. PREDNISONE TAB [Concomitant]
  6. CALCIUM [Concomitant]

REACTIONS (3)
  - DYSPHAGIA [None]
  - EYE HAEMORRHAGE [None]
  - ORAL CANDIDIASIS [None]
